FAERS Safety Report 20619712 (Version 1)
Quarter: 2022Q1

REPORT INFORMATION
  Report Type: Spontaneous
  Country: CA (occurrence: CA)
  Receive Date: 20220322
  Receipt Date: 20220322
  Transmission Date: 20220423
  Serious: Yes (Other)
  Sender: FDA-Public Use
  Company Number: CA-SA-SAC20220315001582

PATIENT
  Age: 57 Year
  Sex: Male

DRUGS (2)
  1. LANTUS [Suspect]
     Active Substance: INSULIN GLARGINE
  2. INSULIN HUMAN NOS [Suspect]
     Active Substance: INSULIN HUMAN

REACTIONS (2)
  - Seizure [Unknown]
  - Incorrect dose administered [Unknown]
